FAERS Safety Report 6099943-5 (Version None)
Quarter: 2009Q1

REPORT INFORMATION
  Report Type: 
  Country: None (occurrence: None)
  Receive Date: 20090303
  Receipt Date: 20090226
  Transmission Date: 20090719
  Serious: Yes (Death)
  Sender: FDA-Public Use
  Company Number: US-EISAI MEDIAL RESEARCH-E3810-02397-CLI-US

PATIENT
  Sex: Male
  Weight: 105 kg

DRUGS (6)
  1. RABEPRAZOLE ER [Suspect]
     Indication: GASTROOESOPHAGEAL REFLUX DISEASE
     Route: 048
     Dates: start: 20081115
  2. LYRICA [Concomitant]
     Route: 048
     Dates: start: 20050101
  3. LUNESTA [Concomitant]
     Route: 048
     Dates: start: 20060101
  4. NORTRIPTYLINE HCL [Concomitant]
     Route: 048
     Dates: start: 20080801
  5. DEMEROL [Concomitant]
     Indication: SEDATION
     Route: 041
     Dates: start: 20081111, end: 20081111
  6. VERSED [Concomitant]
     Indication: SEDATION
     Route: 041
     Dates: start: 20081111, end: 20081111

REACTIONS (1)
  - ACUTE CORONARY SYNDROME [None]
